FAERS Safety Report 16498419 (Version 1)
Quarter: 2019Q2

REPORT INFORMATION
  Report Type: Spontaneous
  Country: FR (occurrence: FR)
  Receive Date: 20190629
  Receipt Date: 20190629
  Transmission Date: 20190711
  Serious: Yes (Death)
  Sender: FDA-Public Use
  Company Number: FR-AUROBINDO-AUR-APL-2019-036753

PATIENT

DRUGS (5)
  1. TERBINAFINE CREAM [Suspect]
     Active Substance: TERBINAFINE
     Indication: SCOPULARIOPSIS INFECTION
     Dosage: UNK
     Route: 065
  2. AMPHOTERICIN B. [Suspect]
     Active Substance: AMPHOTERICIN B
     Indication: SCOPULARIOPSIS INFECTION
     Dosage: UNK
     Route: 065
  3. VORICONAZOLE POWDER FOR SOLUTION FOR INFUSION [Suspect]
     Active Substance: VORICONAZOLE
     Indication: SCOPULARIOPSIS INFECTION
     Dosage: PLASMA CONCENTRATION AT 6.5 MG/L
     Route: 042
  4. MICAFUNGIN. [Suspect]
     Active Substance: MICAFUNGIN SODIUM
     Indication: SCOPULARIOPSIS INFECTION
     Dosage: 100 MILLIGRAM, ONCE A DAY
     Route: 042
  5. MICAFUNGIN. [Suspect]
     Active Substance: MICAFUNGIN SODIUM
     Dosage: 200 MG, 1X/DAY (AFTER 3 WEEKS OF TREATMENT, ADMINISTERED FOR 4 WEEKS)
     Route: 042

REACTIONS (3)
  - Drug ineffective [Fatal]
  - Off label use [Unknown]
  - Product use in unapproved indication [Unknown]
